FAERS Safety Report 9703332 (Version 1)
Quarter: 2013Q4

REPORT INFORMATION
  Report Type: Spontaneous
  Country: US (occurrence: US)
  Receive Date: 20131122
  Receipt Date: 20131122
  Transmission Date: 20140711
  Serious: Yes (Other)
  Sender: FDA-Public Use
  Company Number: US-ASTRAZENECA-2013SE84486

PATIENT
  Sex: 0

DRUGS (2)
  1. BRILINTA [Suspect]
     Indication: ISCHAEMIC HEART DISEASE PROPHYLAXIS
     Route: 048
  2. ASPIRIN [Concomitant]

REACTIONS (2)
  - Acute myocardial infarction [Recovered/Resolved]
  - Coronary artery occlusion [Recovered/Resolved]
